FAERS Safety Report 20829021 (Version 1)
Quarter: 2022Q2

REPORT INFORMATION
  Report Type: Spontaneous
  Country: US (occurrence: US)
  Receive Date: 20220513
  Receipt Date: 20220513
  Transmission Date: 20220720
  Serious: No
  Sender: FDA-Public Use
  Company Number: US-SANOFI-01092362

PATIENT
  Sex: Male

DRUGS (1)
  1. AMBIEN CR [Suspect]
     Active Substance: ZOLPIDEM TARTRATE
     Dosage: UNK

REACTIONS (4)
  - Agitation [Unknown]
  - Catatonia [Unknown]
  - Paranoia [Unknown]
  - Insomnia [Unknown]
